FAERS Safety Report 6615700-2 (Version None)
Quarter: 2010Q1

REPORT INFORMATION
  Report Type: 
  Country: None (occurrence: None)
  Receive Date: 20100305
  Receipt Date: 20100302
  Transmission Date: 20100710
  Serious: Yes (Hospitalization)
  Sender: FDA-Public Use
  Company Number: US-B.I. PHARMACEUTICALS,INC./RIDGEFIELD-2010-BP-02587BP

PATIENT
  Age: 70 Year
  Sex: Male

DRUGS (2)
  1. SPIRIVA [Suspect]
     Indication: EMPHYSEMA
  2. ADVAIR DISKUS 100/50 [Concomitant]
     Indication: EMPHYSEMA

REACTIONS (1)
  - BACK DISORDER [None]
